FAERS Safety Report 25508691 (Version 1)
Quarter: 2025Q3

REPORT INFORMATION
  Report Type: Spontaneous
  Country: US (occurrence: US)
  Receive Date: 20250703
  Receipt Date: 20250703
  Transmission Date: 20251021
  Serious: Yes (Hospitalization, Other)
  Sender: RADIUS PHARM
  Company Number: US-RADIUS HEALTH INC.-US-RADIUS-25050579

PATIENT
  Sex: Female

DRUGS (1)
  1. TYMLOS [Suspect]
     Active Substance: ABALOPARATIDE
     Indication: Senile osteoporosis
     Dosage: 80 MICROGRAM, QD
     Route: 058
     Dates: start: 202402

REACTIONS (4)
  - Pneumonia [Recovering/Resolving]
  - Sepsis [Recovering/Resolving]
  - Multiple sclerosis [Not Recovered/Not Resolved]
  - Cystitis [Recovering/Resolving]

NARRATIVE: CASE EVENT DATE: 20250101
